FAERS Safety Report 4764232-5 (Version None)
Quarter: 2005Q3

REPORT INFORMATION
  Report Type: 
  Country: None (occurrence: None)
  Receive Date: 20050907
  Receipt Date: 20050907
  Transmission Date: 20060218
  Serious: Yes (Other)
  Sender: FDA-Public Use
  Company Number: None

PATIENT
  Age: 58 Year
  Sex: Male
  Weight: 87.9978 kg

DRUGS (4)
  1. EFFEXOR [Suspect]
     Indication: DEPRESSION
     Dosage: ONCE DAILY PO
     Route: 048
     Dates: start: 20050701, end: 20050801
  2. EFFEXOR [Suspect]
     Indication: STRESS
     Dosage: ONCE DAILY PO
     Route: 048
     Dates: start: 20050701, end: 20050801
  3. ZOLOFT [Suspect]
     Indication: DEPRESSION
     Dosage: ONCE DAILY PO
     Route: 048
     Dates: start: 20050801, end: 20050901
  4. ZOLOFT [Suspect]
     Indication: STRESS
     Dosage: ONCE DAILY PO
     Route: 048
     Dates: start: 20050801, end: 20050901

REACTIONS (4)
  - AGITATION [None]
  - HYPERTENSION [None]
  - PERSONALITY CHANGE [None]
  - RENAL IMPAIRMENT [None]
